FAERS Safety Report 9470963 (Version 2)
Quarter: 2013Q4

REPORT INFORMATION
  Report Type: Spontaneous
  Country: IT (occurrence: None)
  Receive Date: 20130815
  Receipt Date: 20131007
  Transmission Date: 20140711
  Serious: Yes (Hospitalization)
  Sender: FDA-Public Use
  Company Number: AUR-APL-2013-06674

PATIENT
  Age: 45 Year
  Sex: Male

DRUGS (1)
  1. AMOXICILLIN (AMOXICILLIN) [Suspect]
     Indication: PRODUCT USED FOR UNKNOWN INDICATION
     Dosage: 1 DOSAGE FORMS, TOTAL, ORAL
     Route: 048
     Dates: start: 20130802, end: 20130802

REACTIONS (3)
  - Erythema [None]
  - Pruritus [None]
  - Periorbital oedema [None]
